FAERS Safety Report 5156528-2 (Version None)
Quarter: 2006Q4

REPORT INFORMATION
  Report Type: 
  Country: None (occurrence: None)
  Receive Date: 20061115
  Receipt Date: 20061106
  Transmission Date: 20070319
  Serious: Yes (Death, Hospitalization)
  Sender: FDA-Public Use
  Company Number: 2006BI015354

PATIENT
  Age: 54 Year
  Sex: Female
  Weight: 46 kg

DRUGS (9)
  1. AVONEX [Suspect]
     Indication: MULTIPLE SCLEROSIS
     Dosage: 30 UG; QW; IM
     Route: 030
     Dates: start: 20010801, end: 20061017
  2. DILANTIN [Concomitant]
  3. KEPRA [Concomitant]
  4. ATROVENT [Concomitant]
  5. FLOVENT [Concomitant]
  6. IBUPROFEN [Concomitant]
  7. PAXIL [Concomitant]
  8. TRILEPTAL [Concomitant]
  9. OXCARBAZEPINE [Concomitant]

REACTIONS (16)
  - ARTHRALGIA [None]
  - CARDIAC ARREST [None]
  - DELIRIUM [None]
  - ELECTROMECHANICAL DISSOCIATION [None]
  - FALL [None]
  - LEUKOPENIA [None]
  - LIVEDO RETICULARIS [None]
  - METABOLIC ACIDOSIS [None]
  - MUSCLE NECROSIS [None]
  - MUSCULAR WEAKNESS [None]
  - NECROTISING FASCIITIS [None]
  - PARTIAL SEIZURES WITH SECONDARY GENERALISATION [None]
  - PATHOGEN RESISTANCE [None]
  - SEPTIC SHOCK [None]
  - UNEVALUABLE EVENT [None]
  - WOUND INFECTION STAPHYLOCOCCAL [None]
